FAERS Safety Report 14412183 (Version 1)
Quarter: 2018Q1

REPORT INFORMATION
  Report Type: Spontaneous
  Country: US (occurrence: US)
  Receive Date: 20180117
  Receipt Date: 20180117
  Transmission Date: 20180509
  Serious: Yes (Life-Threatening, Disabling)
  Sender: FDA-Public Use
  Company Number: None

PATIENT
  Age: 55 Year
  Sex: Male
  Weight: 110.25 kg

DRUGS (1)
  1. PRADAXA [Suspect]
     Active Substance: DABIGATRAN ETEXILATE MESYLATE
     Indication: THROMBOSIS PROPHYLAXIS
     Dosage: ?          QUANTITY:60 CAPSULE(S);?
     Route: 048

REACTIONS (8)
  - Appendicitis [None]
  - Speech disorder [None]
  - Transient ischaemic attack [None]
  - Abdominal pain upper [None]
  - Dizziness [None]
  - Eye infection [None]
  - Conjunctivitis [None]
  - Cerebral infarction [None]

NARRATIVE: CASE EVENT DATE: 20160701
